FAERS Safety Report 24568599 (Version 1)
Quarter: 2024Q4

REPORT INFORMATION
  Report Type: Spontaneous
  Country: CZ (occurrence: CZ)
  Receive Date: 20241031
  Receipt Date: 20241031
  Transmission Date: 20250115
  Serious: Yes (Other)
  Sender: MYLAN
  Company Number: CZ-TEVA-VS-3254408

PATIENT
  Age: 30 Year
  Sex: Female

DRUGS (2)
  1. SUMATRIPTAN [Suspect]
     Active Substance: SUMATRIPTAN
     Indication: Migraine
     Dosage: 25 MILLIGRAM, PRN (AS NECESSARY)
     Route: 065
  2. SUMATRIPTAN [Suspect]
     Active Substance: SUMATRIPTAN
     Dosage: 100 MILLIGRAM, PRN (AS NECESSARY)
     Route: 065

REACTIONS (7)
  - Asthenia [Unknown]
  - Illusion [Unknown]
  - Depressed mood [Unknown]
  - Myalgia [Unknown]
  - Fatigue [Unknown]
  - Temperature intolerance [Unknown]
  - Drug ineffective [Unknown]
